FAERS Safety Report 6685004-0 (Version None)
Quarter: 2010Q2

REPORT INFORMATION
  Report Type: 
  Country: None (occurrence: None)
  Receive Date: 20100416
  Receipt Date: 20100414
  Transmission Date: 20101027
  Serious: Yes (Death)
  Sender: FDA-Public Use
  Company Number: US-SANOFI-AVENTIS-2010SA021457

PATIENT
  Age: 77 Year
  Sex: Female

DRUGS (3)
  1. LANTUS [Suspect]
     Dosage: STARTED 15 U HS WENT UP TO 18 U ,UNITS UPPED EVERY 2 WEEKS AND  COULD GIVE AND ADDITIONAL 1- 2 UNITS
     Route: 058
     Dates: start: 20090101
  2. DRUG USED IN DIABETES [Concomitant]
     Dates: start: 19900101
  3. ALL OTHER THERAPEUTIC PRODUCTS [Concomitant]

REACTIONS (1)
  - DEATH [None]
